FAERS Safety Report 7250627-7 (Version None)
Quarter: 2011Q1

REPORT INFORMATION
  Report Type: 
  Country: None (occurrence: None)
  Receive Date: 20110121
  Receipt Date: 20110121
  Transmission Date: 20110831
  Serious: No
  Sender: FDA-Public Use
  Company Number: None

PATIENT
  Sex: Female

DRUGS (1)
  1. ZOLPIDEM [Suspect]
     Dosage: 1 TABLET PO
     Route: 048

REACTIONS (3)
  - PRODUCT QUALITY ISSUE [None]
  - HYPERSOMNIA [None]
  - PRODUCT CONTAMINATION [None]
